FAERS Safety Report 22027727 (Version 1)
Quarter: 2023Q1

REPORT INFORMATION
  Report Type: Other
  Country: DE (occurrence: DE)
  Receive Date: 20230223
  Receipt Date: 20230223
  Transmission Date: 20230418
  Serious: Yes (Other)
  Sender: FDA-Public Use
  Company Number: DE-EMBRYOTOX-202115296

PATIENT
  Sex: Female
  Weight: 79 kg

DRUGS (16)
  1. DULOXETINE [Suspect]
     Active Substance: DULOXETINE
     Indication: Depression
     Dosage: 60 MG, QD (60 MG/D)
     Route: 048
     Dates: start: 20210707, end: 20220401
  2. MIRTAZAPINE [Suspect]
     Active Substance: MIRTAZAPINE
     Indication: Depression
     Dosage: 15 MILLIGRAM, QD (INCREASED IN THE COURSE OF PREGNANCY TO 30 MG/D)(0 TO 38.2 GESTATIONAL WEEK)
     Route: 048
     Dates: start: 20210707
  3. MIRTAZAPINE [Suspect]
     Active Substance: MIRTAZAPINE
     Dosage: 30 MILLIGRAM, QD (INCREASED IN THE COURSE OF PREGNANCY)
     Route: 048
     Dates: end: 20220401
  4. PREGABALIN [Suspect]
     Active Substance: PREGABALIN
     Indication: Neuralgia
     Dosage: 450 MILLIGRAM, QD (0 TO 38.2 GESTATIONAL WEEK)
     Route: 048
     Dates: start: 20210707
  5. PREGABALIN [Suspect]
     Active Substance: PREGABALIN
     Dosage: 100 MILLIGRAM, QD (REDUCED IN THE COURSE OF PREGNANCY) (0 TO 38.2 GESTATIONAL WEEK)
     Route: 048
     Dates: end: 20220401
  6. CARBIDOPA\LEVODOPA [Suspect]
     Active Substance: CARBIDOPA\LEVODOPA
     Indication: Restless legs syndrome
     Dosage: 25 MG, QD
     Route: 048
  7. CARBIDOPA\LEVODOPA [Suspect]
     Active Substance: CARBIDOPA\LEVODOPA
     Dosage: 100 MILLIGRAM, QD
     Route: 048
  8. HYDROMORPHONE [Concomitant]
     Active Substance: HYDROMORPHONE
     Indication: Bone pain
     Dosage: 2 MILLIGRAM, QD (AT LEAST UNTIL GESTATIONAL WEEK 9.2, NOT KNOWN UNTIL WHEN )(0 TO 9.2 GESTATIONAL WE
     Route: 048
     Dates: start: 20210707, end: 20210910
  9. BENSERAZIDE\LEVODOPA [Concomitant]
     Active Substance: BENSERAZIDE\LEVODOPA
     Indication: Restless legs syndrome
     Dosage: 25 MILLIGRAM, QD
     Route: 048
     Dates: start: 20210707
  10. BENSERAZIDE\LEVODOPA [Concomitant]
     Active Substance: BENSERAZIDE\LEVODOPA
     Dosage: 100 MILLIGRAM, QD
     Route: 048
     Dates: end: 20210910
  11. ATORVASTATIN [Concomitant]
     Active Substance: ATORVASTATIN
     Indication: Hypercholesterolaemia
     Dosage: 10 MILLIGRAM, QD (STOPPED IN EARLY PREGNANCY, GESTATIONAL WEEK NOT KNOWN)
     Route: 048
  12. FOLIC ACID [Concomitant]
     Active Substance: FOLIC ACID
     Indication: Prophylaxis of neural tube defect
     Dosage: 5 MG, QD 5 (MG/D)
     Route: 048
     Dates: start: 20210707, end: 20220401
  13. PANTOPRAZOLE SODIUM [Concomitant]
     Active Substance: PANTOPRAZOLE SODIUM
     Indication: Gastrooesophageal reflux disease
     Dosage: 40 MILLIGRAM, BID (0 - 38.2 GESTATIONAL WEEK)
     Route: 048
     Dates: start: 20210707, end: 20220401
  14. Novalgin [Concomitant]
     Indication: Bone pain
     Dosage: 1000 MILLIGRAM, TID (ON DEMAND UNTIL MAX. GESTATIONAL WEEK 20)
     Route: 048
  15. EUTHYROX [Concomitant]
     Active Substance: LEVOTHYROXINE SODIUM
     Indication: Hypothyroidism
     Dosage: 75 MICROGRAM, QD
     Route: 048
     Dates: start: 20210707, end: 20220401
  16. BOOSTRIX [Concomitant]
     Active Substance: TETANUS TOXOID, REDUCED DIPHTHERIA TOXOID AND ACELLULAR PERTUSSIS VACCINE, ADSORBED ANTIGENS
     Indication: Immunisation
     Dosage: UNK
     Route: 030
     Dates: start: 20220304, end: 20220304

REACTIONS (3)
  - Foetal death [Unknown]
  - Stillbirth [Unknown]
  - Exposure during pregnancy [Unknown]
